FAERS Safety Report 6195899-5 (Version None)
Quarter: 2009Q2

REPORT INFORMATION
  Report Type: 
  Country: None (occurrence: None)
  Receive Date: 20090520
  Receipt Date: 20090514
  Transmission Date: 20091009
  Serious: Yes (Hospitalization)
  Sender: FDA-Public Use
  Company Number: GB-ROCHE-633042

PATIENT
  Sex: Male
  Weight: 82 kg

DRUGS (5)
  1. CAPECITABINE [Suspect]
     Indication: COLON CANCER
     Dosage: COMPLETED 8TH CYCLE; %DOSE REDUCTION: 25%
     Route: 048
     Dates: start: 20071111
  2. CAPECITABINE [Suspect]
     Dosage: DOSE REDUCTION 25%
     Route: 048
  3. BEVACIZUMAB [Suspect]
     Indication: COLON CANCER
     Dosage: FORM: INFUSION; CURRENT CYCLE :8; STRENGTH AS 100 MG FROM PROTOCOL
     Route: 042
     Dates: start: 20071111
  4. FLUCLOXACILLIN [Suspect]
     Indication: DRUG USE FOR UNKNOWN INDICATION
     Route: 042
     Dates: start: 20090513
  5. BETNOVATE CREAM [Concomitant]
     Dates: start: 20090512

REACTIONS (1)
  - DERMATITIS EXFOLIATIVE [None]
